FAERS Safety Report 15468557 (Version 1)
Quarter: 2018Q4

REPORT INFORMATION
  Report Type: Spontaneous
  Country: US (occurrence: US)
  Receive Date: 20181005
  Receipt Date: 20181005
  Transmission Date: 20190204
  Serious: No
  Sender: FDA-Public Use
  Company Number: US-SA-2018SA274922

PATIENT
  Age: 65 Year
  Sex: Male

DRUGS (1)
  1. LANTUS SOLOSTAR [Suspect]
     Active Substance: INSULIN GLARGINE
     Indication: TYPE 2 DIABETES MELLITUS
     Dosage: 50 UNITS IN THE MORNING AND 70 UNITS IN THE EVENING, BID
     Route: 065

REACTIONS (3)
  - Device leakage [Unknown]
  - Inappropriate schedule of product administration [Unknown]
  - Eye disorder [Unknown]
